FAERS Safety Report 24924989 (Version 1)
Quarter: 2025Q1

REPORT INFORMATION
  Report Type: Report from Study
  Country: US (occurrence: US)
  Receive Date: 20250204
  Receipt Date: 20250204
  Transmission Date: 20250409
  Serious: No
  Sender: EXELIXIS
  Company Number: US-EXELIXIS-CABO-24077487

PATIENT
  Age: 59 Year
  Sex: Male

DRUGS (4)
  1. CABOMETYX [Suspect]
     Active Substance: CABOZANTINIB S-MALATE
     Indication: Renal cancer
     Dosage: 40 MG, QD
     Route: 048
  2. CABOMETYX [Suspect]
     Active Substance: CABOZANTINIB S-MALATE
     Dosage: 20 MG, QD
     Route: 048
     Dates: start: 20231114
  3. LISINOPRIL [Concomitant]
     Active Substance: LISINOPRIL
  4. VARENICLINE [Concomitant]
     Active Substance: VARENICLINE

REACTIONS (12)
  - Blood pressure increased [Unknown]
  - Dry skin [Unknown]
  - Dysgeusia [Unknown]
  - Fall [Unknown]
  - Back injury [Unknown]
  - Anxiety [Unknown]
  - Nervousness [Unknown]
  - Swollen tongue [Recovered/Resolved]
  - Lip swelling [Recovered/Resolved]
  - Swelling face [Recovered/Resolved]
  - Insomnia [Unknown]
  - Sleep apnoea syndrome [Unknown]

NARRATIVE: CASE EVENT DATE: 20240516
